FAERS Safety Report 11525656 (Version 1)
Quarter: 2015Q3

REPORT INFORMATION
  Report Type: Spontaneous
  Country: US (occurrence: US)
  Receive Date: 20150918
  Receipt Date: 20150918
  Transmission Date: 20151125
  Serious: No
  Sender: FDA-Public Use
  Company Number: US-CELGENEUS-USA-2015087272

PATIENT
  Age: 60 Year
  Sex: Female

DRUGS (1)
  1. OTEZLA [Suspect]
     Active Substance: APREMILAST
     Indication: PSORIATIC ARTHROPATHY
     Dosage: 60 MILLIGRAM
     Route: 048
     Dates: start: 20150824

REACTIONS (7)
  - Eye swelling [Unknown]
  - Insomnia [Unknown]
  - Tremor [Unknown]
  - Parosmia [Unknown]
  - Headache [Unknown]
  - Nausea [Unknown]
  - Lip swelling [Unknown]

NARRATIVE: CASE EVENT DATE: 20150824
